FAERS Safety Report 6955297-0 (Version None)
Quarter: 2010Q3

REPORT INFORMATION
  Report Type: 
  Country: None (occurrence: None)
  Receive Date: 20100830
  Receipt Date: 20100818
  Transmission Date: 20110219
  Serious: Yes (Other)
  Sender: FDA-Public Use
  Company Number: PHHY2010CA55005

PATIENT
  Sex: Female

DRUGS (3)
  1. SANDOSTATIN LAR [Suspect]
     Indication: ACROMEGALY
     Dosage: 20 MG EVERY FOUR WEEKS
     Route: 030
     Dates: start: 20080605
  2. SANDOSTATIN LAR [Suspect]
     Dosage: UNK
     Dates: start: 20080701
  3. SANDOSTATIN LAR [Suspect]
     Dosage: UNK
     Dates: start: 20080801

REACTIONS (1)
  - MENSTRUAL DISORDER [None]
